FAERS Safety Report 10211109 (Version 1)
Quarter: 2014Q2

REPORT INFORMATION
  Report Type: Report from Study
  Country: RU (occurrence: RU)
  Receive Date: 20140602
  Receipt Date: 20140602
  Transmission Date: 20141212
  Serious: Yes (Other)
  Sender: FDA-Public Use
  Company Number: RU-ROCHE-1412043

PATIENT
  Age: 62 Year
  Sex: Male
  Weight: 84 kg

DRUGS (6)
  1. AVASTIN [Suspect]
     Indication: RECTAL CANCER METASTATIC
     Route: 065
     Dates: start: 20120710, end: 20130625
  2. XELODA [Suspect]
     Indication: RECTAL CANCER METASTATIC
     Route: 048
     Dates: start: 20120710, end: 20130322
  3. XELODA [Suspect]
     Route: 048
     Dates: end: 20130604
  4. OXALIPLATIN [Concomitant]
     Indication: RECTAL CANCER METASTATIC
     Route: 042
     Dates: start: 20120710, end: 20130322
  5. OXALIPLATIN [Concomitant]
     Dosage: 1 DAY OF THE COURSE
     Route: 042
     Dates: start: 20130507, end: 20130604
  6. MITOMYCIN [Concomitant]
     Indication: RECTAL CANCER
     Route: 042
     Dates: start: 20130322, end: 20130507

REACTIONS (1)
  - Disease progression [Not Recovered/Not Resolved]
